FAERS Safety Report 6393182-6 (Version None)
Quarter: 2009Q4

REPORT INFORMATION
  Report Type: 
  Country: None (occurrence: None)
  Receive Date: 20091008
  Receipt Date: 20090925
  Transmission Date: 20100525
  Serious: Yes (Hospitalization, Other)
  Sender: FDA-Public Use
  Company Number: US-ELI_LILLY_AND_COMPANY-US200909006693

PATIENT
  Age: 60 Year
  Sex: Male

DRUGS (8)
  1. EFFIENT [Suspect]
     Dosage: 10 MG, UNK
     Route: 048
  2. PRILOSEC [Concomitant]
  3. ASPIRIN [Concomitant]
  4. ANGIOMAX [Concomitant]
  5. PRAVASTATIN [Concomitant]
  6. METFORMIN [Concomitant]
     Dosage: 1000 MG, 2/D
  7. LISINOPRIL [Concomitant]
  8. GLIPIZIDE [Concomitant]

REACTIONS (2)
  - ANGINA UNSTABLE [None]
  - POST PROCEDURAL MYOCARDIAL INFARCTION [None]
